FAERS Safety Report 7261542-7 (Version None)
Quarter: 2011Q1

REPORT INFORMATION
  Report Type: 
  Country: None (occurrence: None)
  Receive Date: 20110130
  Receipt Date: 20100922
  Transmission Date: 20110831
  Serious: No
  Sender: FDA-Public Use
  Company Number: US-ABBOTT-10P-163-0672712-00

PATIENT
  Age: 20 Year
  Sex: Male

DRUGS (10)
  1. HUMIRA [Suspect]
     Indication: CROHN'S DISEASE
     Dates: start: 20100701
  2. PENTASA [Concomitant]
     Indication: CROHN'S DISEASE
  3. IMURAN [Concomitant]
     Indication: CROHN'S DISEASE
  4. PREDNISONE [Concomitant]
     Indication: CROHN'S DISEASE
  5. ESTER C [Concomitant]
     Indication: VITAMIN SUPPLEMENTATION
  6. LOVAZA [Concomitant]
     Indication: PRODUCT USED FOR UNKNOWN INDICATION
     Dosage: OIL DAILY
  7. SEROQUEL [Concomitant]
     Indication: TOURETTE'S DISORDER
     Dosage: AT BEDTIME
  8. VITAMIN B-12 [Concomitant]
     Indication: PRODUCT USED FOR UNKNOWN INDICATION
     Dosage: SUPPLEMENT
  9. PREVACID [Concomitant]
     Indication: ABDOMINAL DISCOMFORT
  10. ALIGN PROBIOTIC SUPPLEMENT [Concomitant]
     Indication: PRODUCT USED FOR UNKNOWN INDICATION

REACTIONS (1)
  - HALLUCINATION, VISUAL [None]
